FAERS Safety Report 6265747-3 (Version None)
Quarter: 2009Q3

REPORT INFORMATION
  Report Type: 
  Country: None (occurrence: None)
  Receive Date: 20090713
  Receipt Date: 20090702
  Transmission Date: 20100115
  Serious: Yes (Death, Other)
  Sender: FDA-Public Use
  Company Number: US-TYCO HEALTHCARE/MALLINCKRODT-T200800679

PATIENT

DRUGS (27)
  1. OPTIMARK [Suspect]
     Indication: ANGIOGRAM
     Dosage: UNK, SINGLE
     Route: 042
     Dates: start: 20050314, end: 20050314
  2. OPTIMARK [Suspect]
     Indication: NUCLEAR MAGNETIC RESONANCE IMAGING BRAIN
     Dosage: UNK, SINGLE
     Route: 042
     Dates: start: 20050422, end: 20050422
  3. OPTIMARK [Suspect]
     Indication: NUCLEAR MAGNETIC RESONANCE IMAGING
     Dosage: UNK
     Route: 042
     Dates: start: 20050505, end: 20050505
  4. OPTIMARK [Suspect]
  5. MAVIK [Concomitant]
     Indication: BLOOD PRESSURE
     Dosage: 4 MG, BID
     Dates: start: 20050315
  6. COREG [Concomitant]
     Indication: CARDIAC DISORDER
     Dosage: 25 MG, BID
     Dates: start: 20050315
  7. CLONIDINE [Concomitant]
     Indication: CARDIAC DISORDER
     Dosage: .2 MG, BID
     Route: 048
     Dates: start: 20050315
  8. PHOSLO [Concomitant]
     Indication: RENAL DISORDER
     Dosage: 667 MG, TID WITH MEALS
     Route: 048
  9. NEURONTIN [Concomitant]
     Dosage: 100 MG, QD
     Dates: end: 20050411
  10. KOSURBIDE MN [Concomitant]
     Indication: CARDIAC DISORDER
     Dosage: 30 MG, UNK
     Dates: start: 20050315
  11. FLEXERIL [Concomitant]
     Dosage: 10 MG, TID PRN
  12. SENSIPAR [Concomitant]
     Dosage: 90 MG, BID
     Route: 048
     Dates: end: 20050411
  13. SENSIPAR [Concomitant]
     Dosage: 60 MG, QD
     Route: 048
  14. OTHER COUGH SUPPRESSANTS [Concomitant]
  15. ZYRTEC [Concomitant]
  16. AMBIEN [Concomitant]
     Dosage: UNK
  17. COLACE [Concomitant]
     Dosage: 100 MG, BID
     Route: 048
  18. EPOGEN [Concomitant]
     Dosage: 10000 IU, 3X PER WEEK
     Route: 058
  19. IMDUR [Concomitant]
     Dosage: 30 MG, BID
  20. KLONOPIN [Concomitant]
     Indication: RESTLESS LEGS SYNDROME
     Dosage: 0.5 MG, PRN QHS
     Route: 048
  21. MAGNESIUM SULFATE [Concomitant]
     Dosage: 250 MG, QD
  22. OXYCONTIN [Concomitant]
     Indication: PAIN
     Dosage: 20 MG, QD PRN
  23. PREDNISONE [Concomitant]
     Dosage: 10 MG, TAPERING DOSE
  24. PROCARDIA [Concomitant]
     Dosage: 30 MG, BID
  25. TORADOL [Concomitant]
     Indication: PAIN
     Dosage: UNK
  26. BACTROBAN [Concomitant]
     Dosage: TO TENCKHOFF SITE
  27. TUSSIONEX [Concomitant]

REACTIONS (4)
  - BRONCHOPNEUMONIA [None]
  - CARDIO-RESPIRATORY ARREST [None]
  - NEPHROGENIC SYSTEMIC FIBROSIS [None]
  - OFF LABEL USE [None]
